FAERS Safety Report 9263992 (Version 1)
Quarter: 2013Q2

REPORT INFORMATION
  Report Type: Spontaneous
  Country: SE (occurrence: SE)
  Receive Date: 20130430
  Receipt Date: 20130430
  Transmission Date: 20140414
  Serious: Yes (Other)
  Sender: FDA-Public Use
  Company Number: SE-GLAXOSMITHKLINE-B0888303A

PATIENT
  Sex: 0

DRUGS (2)
  1. TYVERB [Suspect]
     Indication: PRODUCT USED FOR UNKNOWN INDICATION
     Route: 065
     Dates: start: 201211
  2. XELODA [Suspect]
     Indication: PRODUCT USED FOR UNKNOWN INDICATION
     Route: 065
     Dates: start: 201211

REACTIONS (4)
  - Pulmonary embolism [Unknown]
  - Pulmonary infarction [Unknown]
  - Infection [Unknown]
  - Cough [Not Recovered/Not Resolved]
